FAERS Safety Report 9225121 (Version 1)
Quarter: 2013Q2

REPORT INFORMATION
  Report Type: Spontaneous
  Country: PH (occurrence: PH)
  Receive Date: 20130411
  Receipt Date: 20130411
  Transmission Date: 20140414
  Serious: Yes (Death)
  Sender: FDA-Public Use
  Company Number: PH-009507513-1304PHL004954

PATIENT
  Sex: Male

DRUGS (1)
  1. JANUVIA [Suspect]
     Dosage: 1 DF, QD

REACTIONS (3)
  - Diabetic complication [Fatal]
  - Cardiac disorder [Fatal]
  - Pneumonia [Fatal]
